FAERS Safety Report 5502342-5 (Version None)
Quarter: 2007Q4

REPORT INFORMATION
  Report Type: 
  Country: None (occurrence: None)
  Receive Date: 20071030
  Receipt Date: 20071018
  Transmission Date: 20080405
  Serious: Yes (Other)
  Sender: FDA-Public Use
  Company Number: US-SHR-US-2007-018038

PATIENT
  Sex: Male

DRUGS (3)
  1. FLUDARA [Suspect]
     Dosage: COMPLETED 5 CYCLES
     Route: 042
     Dates: start: 20060101, end: 20061201
  2. CYTOXAN [Suspect]
     Dosage: COMPLETED 5 CYCLES
     Route: 042
     Dates: start: 20060101, end: 20061201
  3. RITUXAN [Suspect]
     Dosage: COMPLETED 5 CYCLES
     Route: 042
     Dates: start: 20060101, end: 20061201

REACTIONS (1)
  - BLINDNESS [None]
